FAERS Safety Report 8768760 (Version 2)
Quarter: 2012Q4

REPORT INFORMATION
  Report Type: 
  Country: US (occurrence: US)
  Receive Date: 20120906
  Receipt Date: 20120920
  Transmission Date: 20130627
  Serious: Yes (Other)
  Sender: FDA-Public Use
  Company Number: CHPA2012US019258

PATIENT
  Age: 90 Year
  Sex: Male

DRUGS (3)
  1. VOLTAREN GEL [Suspect]
     Indication: ARTHRITIS
     Dosage: Just a drop, once
     Route: 061
  2. VOLTAREN GEL [Suspect]
     Dosage: One little drop, once a day
     Route: 061
     Dates: start: 201206
  3. VOLTAREN GEL [Suspect]
     Dosage: Unk, TID
     Route: 061

REACTIONS (7)
  - Arthritis [Unknown]
  - Joint lock [Not Recovered/Not Resolved]
  - Off label use [Unknown]
  - Therapeutic response unexpected [Unknown]
  - Drug administered at inappropriate site [Unknown]
  - Wrong technique in drug usage process [Unknown]
  - Underdose [Unknown]
